APPROVED DRUG PRODUCT: TROPICACYL
Active Ingredient: TROPICAMIDE
Strength: 1%
Dosage Form/Route: SOLUTION/DROPS;OPHTHALMIC
Application: A040315 | Product #001 | TE Code: AT
Applicant: RISING PHARMA HOLDINGS INC
Approved: Sep 29, 2000 | RLD: No | RS: No | Type: RX